FAERS Safety Report 8115344-X (Version None)
Quarter: 2012Q1

REPORT INFORMATION
  Report Type: 
  Country: None (occurrence: None)
  Receive Date: 20120206
  Receipt Date: 20120206
  Transmission Date: 20120608
  Serious: Yes (Life-Threatening, Hospitalization)
  Sender: FDA-Public Use
  Company Number: None

PATIENT
  Sex: Male
  Weight: 88.9 kg

DRUGS (2)
  1. PRADAXA [Suspect]
     Indication: DEVICE OCCLUSION
     Dosage: 150MG
     Route: 048
     Dates: start: 20110630, end: 20110922
  2. PRADAXA [Suspect]
     Indication: PROPHYLAXIS
     Dosage: 150MG
     Route: 048
     Dates: start: 20110630, end: 20110922

REACTIONS (3)
  - UPPER GASTROINTESTINAL HAEMORRHAGE [None]
  - BLOOD CREATININE INCREASED [None]
  - ASTHENIA [None]
